FAERS Safety Report 24224120 (Version 1)
Quarter: 2024Q3

REPORT INFORMATION
  Report Type: Spontaneous
  Country: GB (occurrence: GB)
  Receive Date: 20240819
  Receipt Date: 20240819
  Transmission Date: 20241017
  Serious: Yes (Other)
  Sender: TEVA
  Company Number: None

PATIENT
  Age: 61 Year
  Sex: Female

DRUGS (30)
  1. SPIRONOLACTONE [Suspect]
     Active Substance: SPIRONOLACTONE
     Indication: Oedema
     Dosage: 25MG OM
     Route: 065
     Dates: start: 20240807, end: 20240809
  2. POTASSIUM BICARBONATE\POTASSIUM CHLORIDE [Concomitant]
     Active Substance: POTASSIUM BICARBONATE\POTASSIUM CHLORIDE
  3. LANTUS [Concomitant]
     Active Substance: INSULIN GLARGINE
  4. ONDANSETRON [Concomitant]
     Active Substance: ONDANSETRON
  5. ACETAMINOPHEN [Concomitant]
     Active Substance: ACETAMINOPHEN
  6. OMEPRAZOLE [Concomitant]
     Active Substance: OMEPRAZOLE
     Dates: end: 20240730
  7. ASPIRIN [Concomitant]
     Active Substance: ASPIRIN
  8. DALTEPARIN [Concomitant]
     Active Substance: DALTEPARIN
  9. SODIUM BICARBONATE [Concomitant]
     Active Substance: SODIUM BICARBONATE
  10. CIPROFLOXACIN [Concomitant]
     Active Substance: CIPROFLOXACIN
     Dates: end: 20240801
  11. CYCLIZINE [Concomitant]
     Active Substance: CYCLIZINE
  12. LACTULOSE [Concomitant]
     Active Substance: LACTULOSE
  13. FOLIC ACID [Concomitant]
     Active Substance: FOLIC ACID
  14. FLUCLOXACILLIN [Concomitant]
     Active Substance: FLUCLOXACILLIN
     Dates: end: 20240724
  15. FUROSEMIDE [Concomitant]
     Active Substance: FUROSEMIDE
  16. SENNA [Concomitant]
     Active Substance: SENNA LEAF\SENNOSIDES\SENNOSIDES A AND B
  17. DOCUSATE [Concomitant]
     Active Substance: DOCUSATE
  18. NICOTINE [Concomitant]
     Active Substance: NICOTINE
  19. LOPERAMIDE [Concomitant]
     Active Substance: LOPERAMIDE
  20. LANSOPRAZOLE [Concomitant]
     Active Substance: LANSOPRAZOLE
  21. CASPOFUNGIN [Concomitant]
     Active Substance: CASPOFUNGIN
     Dates: end: 20240731
  22. MEROPENEM [Concomitant]
     Active Substance: MEROPENEM
  23. MELATONIN [Concomitant]
     Active Substance: MELATONIN
  24. COSYNTROPIN [Concomitant]
     Active Substance: COSYNTROPIN
     Dates: start: 20240803, end: 20240803
  25. TEICOPLANIN [Concomitant]
     Active Substance: TEICOPLANIN
  26. OXYCODONE [Concomitant]
     Active Substance: OXYCODONE
  27. GABAPENTIN [Concomitant]
     Active Substance: GABAPENTIN
  28. HYDROCORTONE [Concomitant]
     Active Substance: HYDROCORTISONE
     Dates: end: 20240803
  29. COTRIMOXAZOLE [Concomitant]
     Active Substance: SULFAMETHOXAZOLE\TRIMETHOPRIM
     Dates: end: 20240724
  30. LIDOCAINE [Concomitant]
     Active Substance: LIDOCAINE

REACTIONS (4)
  - Rash [Unknown]
  - Pain in extremity [Unknown]
  - Skin exfoliation [Unknown]
  - Skin warm [Unknown]

NARRATIVE: CASE EVENT DATE: 20240809
